FAERS Safety Report 5474158-X (Version None)
Quarter: 2007Q3

REPORT INFORMATION
  Report Type: 
  Country: None (occurrence: None)
  Receive Date: 20070830
  Receipt Date: 20070220
  Transmission Date: 20080115
  Serious: Yes (Disabling, Other)
  Sender: FDA-Public Use
  Company Number: 235210

PATIENT
  Sex: Male

DRUGS (10)
  1. XOLAIR [Suspect]
     Indication: ASTHMA
     Dosage: 225 MG Q4W, SUBCUTANEOUS
     Route: 058
     Dates: start: 20031121
  2. LIPITOR (ATORVATATIN CALCIUM) [Concomitant]
  3. NEXIUM [Concomitant]
  4. PROCARDIA [Concomitant]
  5. SINGULAIR [Concomitant]
  6. ZOLOFT [Concomitant]
  7. PULMICORT [Concomitant]
  8. COZAAR [Concomitant]
  9. GABAPENTIN [Concomitant]
  10. MEDICATION (UNK INGREDIENT) (GENERIC COMPONENT(S) NOT KNOWN) [Concomitant]

REACTIONS (1)
  - MALIGNANT NEOPLASM OF EYE [None]
